FAERS Safety Report 4898443-5 (Version None)
Quarter: 2006Q1

REPORT INFORMATION
  Report Type: 
  Country: None (occurrence: None)
  Receive Date: 20060202
  Receipt Date: 20060124
  Transmission Date: 20060701
  Serious: Yes (Other)
  Sender: FDA-Public Use
  Company Number: US-JNJFOC-20051200158

PATIENT
  Sex: Male
  Weight: 66.68 kg

DRUGS (10)
  1. REMICADE [Suspect]
     Route: 042
  2. REMICADE [Suspect]
     Route: 042
  3. REMICADE [Suspect]
     Indication: RHEUMATOID ARTHRITIS
     Route: 042
  4. METHOTREXATE [Concomitant]
  5. LASIX [Concomitant]
     Indication: HYPERTENSION
  6. LISINOPRIL [Concomitant]
     Indication: HYPERTENSION
  7. MINOCYCLINE HCL [Concomitant]
     Indication: ROSACEA
  8. FOLIC ACID [Concomitant]
  9. CENTRUM [Concomitant]
  10. CENTRUM [Concomitant]

REACTIONS (1)
  - MALIGNANT MELANOMA [None]
